FAERS Safety Report 9204102 (Version 1)
Quarter: 2013Q1

REPORT INFORMATION
  Report Type: Spontaneous
  Country: US (occurrence: None)
  Receive Date: 20130329
  Receipt Date: 20130329
  Transmission Date: 20140127
  Serious: Yes (Life-Threatening, Other)
  Sender: FDA-Public Use
  Company Number: 001495855A

PATIENT
  Age: 22 Year
  Sex: Female

DRUGS (2)
  1. PROACTIVE RENEWING CLEANSER [Suspect]
     Indication: ACNE
     Dosage: ONCE DAILY DERMAL
     Route: 062
     Dates: start: 20130302, end: 20130303
  2. PROACTIVE REPAIRING TREATMENT [Suspect]
     Indication: ACNE
     Dosage: ONCE DAILY DERMAL
     Route: 062
     Dates: start: 20130302, end: 20130303

REACTIONS (6)
  - Rash macular [None]
  - Swelling face [None]
  - Eye swelling [None]
  - Pharyngeal oedema [None]
  - Throat tightness [None]
  - Dyspnoea [None]
